FAERS Safety Report 20628927 (Version 1)
Quarter: 2022Q1

REPORT INFORMATION
  Report Type: Spontaneous
  Country: US (occurrence: None)
  Receive Date: 20220323
  Receipt Date: 20220323
  Transmission Date: 20220423
  Serious: Yes (Other)
  Sender: FDA-Public Use
  Company Number: None

PATIENT
  Age: 78 Year
  Sex: Male
  Weight: 73.8 kg

DRUGS (22)
  1. XTANDI [Suspect]
     Active Substance: ENZALUTAMIDE
     Indication: Prostate cancer metastatic
     Dosage: FREQUENCY : DAILY;?
     Route: 048
     Dates: start: 20210406
  2. ACETAMINOPHEN [Concomitant]
     Active Substance: ACETAMINOPHEN
  3. AMLODIPINE BESYLATE [Concomitant]
     Active Substance: AMLODIPINE BESYLATE
  4. Calcium 600 mg [Concomitant]
  5. CARVEDILOL [Concomitant]
     Active Substance: CARVEDILOL
  6. CARVEDILOL [Concomitant]
     Active Substance: CARVEDILOL
  7. MINERALS\VITAMINS [Concomitant]
     Active Substance: MINERALS\VITAMINS
  8. COUMADIN [Concomitant]
     Active Substance: WARFARIN SODIUM
  9. cranberry 500 mg [Concomitant]
  10. CRESTOR [Concomitant]
     Active Substance: ROSUVASTATIN CALCIUM
  11. diphenhydramine 50 mg [Concomitant]
  12. STOOL SOFTENER (DOCUSATE) [Concomitant]
     Active Substance: DOCUSATE
  13. Eligard 22.5 mg [Concomitant]
  14. ELIQUIS [Concomitant]
     Active Substance: APIXABAN
  15. GABAPENTIN [Concomitant]
     Active Substance: GABAPENTIN
  16. HYDROCHLOROTHIAZIDE [Concomitant]
     Active Substance: HYDROCHLOROTHIAZIDE
  17. Macrobid 100 mg [Concomitant]
  18. magnesium oxide 500 mg [Concomitant]
  19. OMEPRAZOLE [Concomitant]
     Active Substance: OMEPRAZOLE
  20. potassium 550 mg [Concomitant]
  21. PREDNISONE [Concomitant]
     Active Substance: PREDNISONE
  22. probiotic and acidophilus Ex strength [Concomitant]

REACTIONS (2)
  - Drug ineffective [None]
  - Prostatic specific antigen abnormal [None]

NARRATIVE: CASE EVENT DATE: 20220323
